APPROVED DRUG PRODUCT: BUSPIRONE HYDROCHLORIDE
Active Ingredient: BUSPIRONE HYDROCHLORIDE
Strength: 15MG
Dosage Form/Route: TABLET;ORAL
Application: A208972 | Product #004 | TE Code: BX
Applicant: EPIC PHARMA LLC
Approved: Apr 16, 2019 | RLD: No | RS: No | Type: RX